FAERS Safety Report 14619003 (Version 1)
Quarter: 2018Q1

REPORT INFORMATION
  Report Type: Spontaneous
  Country: TH (occurrence: TH)
  Receive Date: 20180309
  Receipt Date: 20180309
  Transmission Date: 20180509
  Serious: Yes (Other)
  Sender: FDA-Public Use
  Company Number: PHHY2018TH036591

PATIENT
  Age: 80 Year
  Sex: Female

DRUGS (6)
  1. EXELON PATCH [Suspect]
     Active Substance: RIVASTIGMINE
     Dosage: 9.5 MG, QD  PATCH 10 (CM2)
     Route: 062
  2. CLONAZEPAM. [Concomitant]
     Active Substance: CLONAZEPAM
     Indication: PRODUCT USED FOR UNKNOWN INDICATION
     Dosage: 2 AT 8 PM
     Route: 065
  3. PRAMIPEXOLE. [Concomitant]
     Active Substance: PRAMIPEXOLE
     Indication: PRODUCT USED FOR UNKNOWN INDICATION
     Dosage: (1 AT 6 AM, 1 AT 11 AM , 0.5 AT 4 PM)
     Route: 065
  4. LEVODOPA [Concomitant]
     Active Substance: LEVODOPA
     Indication: PRODUCT USED FOR UNKNOWN INDICATION
     Dosage: (1 AT 6 AM, 1 AT 11 AM, 0.5 AT 4 PM)
     Route: 065
  5. QUETIAPINE. [Concomitant]
     Active Substance: QUETIAPINE
     Indication: PRODUCT USED FOR UNKNOWN INDICATION
     Dosage: 1 AT 8 PM
     Route: 065
  6. EXELON PATCH [Suspect]
     Active Substance: RIVASTIGMINE
     Indication: PARKINSON^S DISEASE
     Dosage: 4.6 MG, QD PATCH 5 (CM2)
     Route: 062

REACTIONS (16)
  - Delusion [Recovered/Resolved]
  - Chest discomfort [Recovered/Resolved]
  - Irritability [Unknown]
  - Gait disturbance [Unknown]
  - Balance disorder [Unknown]
  - Cognitive disorder [Unknown]
  - Dysphonia [Unknown]
  - Choking [Unknown]
  - Cerebral atrophy [Unknown]
  - Eyelid disorder [Unknown]
  - Insomnia [Unknown]
  - Malaise [Unknown]
  - Constipation [Unknown]
  - Hallucination, visual [Recovered/Resolved]
  - Fall [Unknown]
  - Bradykinesia [Unknown]
